FAERS Safety Report 8619641 (Version 6)
Quarter: 2013Q4

REPORT INFORMATION
  Report Type: Spontaneous
  Country: JP (occurrence: JP)
  Receive Date: 20120618
  Receipt Date: 20131121
  Transmission Date: 20140711
  Serious: Yes (Death, Hospitalization, Other)
  Sender: FDA-Public Use
  Company Number: JP-ROCHE-1075950

PATIENT
  Age: 29 Year
  Sex: Female
  Weight: 50 kg

DRUGS (21)
  1. AVASTIN [Suspect]
     Indication: BREAST CANCER METASTATIC
     Route: 041
     Dates: start: 20120425, end: 20120522
  2. HERCEPTIN [Suspect]
     Indication: BREAST CANCER METASTATIC
     Route: 041
     Dates: start: 20110222, end: 20110627
  3. HERCEPTIN [Suspect]
     Indication: BREAST CANCER METASTATIC
     Route: 041
     Dates: start: 20111212, end: 20120123
  4. HERCEPTIN [Suspect]
     Indication: BREAST CANCER METASTATIC
     Route: 041
     Dates: start: 20120130, end: 20120313
  5. VINORELBINE TARTRATE [Suspect]
     Indication: BREAST CANCER METASTATIC
     Dosage: ON DAYS 1 AND 8
     Route: 042
  6. PACLITAXEL [Suspect]
     Indication: BREAST CANCER METASTATIC
     Route: 041
     Dates: start: 20110222, end: 20120424
  7. PACLITAXEL [Suspect]
     Route: 041
     Dates: start: 20120425, end: 20120522
  8. PACLITAXEL [Suspect]
     Route: 041
     Dates: start: 20110523, end: 20110627
  9. DOCETAXEL [Suspect]
     Indication: BREAST CANCER METASTATIC
     Route: 041
     Dates: start: 20120130, end: 20120313
  10. CARBOPLATIN [Suspect]
     Indication: BREAST CANCER METASTATIC
     Route: 041
     Dates: start: 20120130, end: 20120313
  11. LOXONIN [Concomitant]
     Indication: PAIN
     Route: 048
     Dates: end: 20120625
  12. MUCOSTA [Concomitant]
     Indication: PROPHYLAXIS AGAINST GASTROINTESTINAL ULCER
     Route: 048
     Dates: end: 20120625
  13. PURSENNID [Concomitant]
     Indication: CONSTIPATION
     Route: 048
     Dates: end: 20120625
  14. TYKERB [Concomitant]
     Indication: BREAST CANCER METASTATIC
     Route: 048
     Dates: start: 20110704, end: 20111211
  15. XELODA [Concomitant]
     Indication: BREAST CANCER METASTATIC
     Route: 048
     Dates: start: 20110704, end: 20111211
  16. NAVELBINE [Concomitant]
     Indication: BREAST CANCER METASTATIC
     Route: 041
     Dates: start: 20111212, end: 20120123
  17. ZOMETA [Concomitant]
     Indication: BREAST CANCER METASTATIC
     Route: 042
     Dates: start: 20110613, end: 20111114
  18. CYCLOPHOSPHAMIDE [Concomitant]
     Indication: BREAST CANCER METASTATIC
     Dosage: 3 CYCLES
     Route: 065
  19. FLUOROURACIL [Concomitant]
     Indication: BREAST CANCER METASTATIC
     Route: 065
  20. ADRIAMYCIN [Concomitant]
     Indication: BREAST CANCER METASTATIC
     Route: 065
  21. ERIBULIN [Concomitant]
     Indication: BREAST CANCER METASTATIC
     Route: 065

REACTIONS (12)
  - Breast cancer metastatic [Fatal]
  - Tumour haemorrhage [Recovered/Resolved]
  - Pulmonary infarction [Unknown]
  - Skin erosion [Recovered/Resolved]
  - Skin ulcer [Recovered/Resolved]
  - Skin necrosis [Recovered/Resolved]
  - Tumour necrosis [Recovered/Resolved]
  - Pain [Unknown]
  - Nausea [Unknown]
  - Anaemia [Unknown]
  - Decreased appetite [Unknown]
  - No therapeutic response [Unknown]
